FAERS Safety Report 12856053 (Version 2)
Quarter: 2017Q1

REPORT INFORMATION
  Report Type: Report from Study
  Country: FR (occurrence: FR)
  Receive Date: 20161018
  Receipt Date: 20170113
  Transmission Date: 20170428
  Serious: Yes (Death, Hospitalization, Other)
  Sender: FDA-Public Use
  Company Number: FR-ROCHE-1014871

PATIENT
  Age: 66 Year
  Sex: Male
  Weight: 75 kg

DRUGS (8)
  1. VISMODEGIB [Suspect]
     Active Substance: VISMODEGIB
     Dosage: COURSE 6
     Route: 048
     Dates: start: 20110805
  2. VISMODEGIB [Suspect]
     Active Substance: VISMODEGIB
     Dosage: COURSE 2
     Route: 048
     Dates: start: 20110408
  3. VISMODEGIB [Suspect]
     Active Substance: VISMODEGIB
     Dosage: COURSE 9
     Route: 048
     Dates: start: 20111103
  4. VISMODEGIB [Suspect]
     Active Substance: VISMODEGIB
     Dosage: COURSE 8
     Route: 048
     Dates: start: 20111006
  5. VISMODEGIB [Suspect]
     Active Substance: VISMODEGIB
     Dosage: COURSE 7
     Route: 048
     Dates: start: 20110906
  6. VISMODEGIB [Suspect]
     Active Substance: VISMODEGIB
     Indication: CHONDROSARCOMA
     Dosage: CYCLE=28 DAYS,QD, TOTAL DOSE:4200 MG, LAST DOSE PRIOR TO SAE: 8/JAN/2011?REPORTED AS GDC-0049. CYCLE
     Route: 048
     Dates: start: 20110314
  7. VISMODEGIB [Suspect]
     Active Substance: VISMODEGIB
     Dosage: COURSE 5
     Route: 048
     Dates: start: 20110705
  8. VISMODEGIB [Suspect]
     Active Substance: VISMODEGIB
     Dosage: COURSE 4
     Route: 048
     Dates: start: 20110609

REACTIONS (6)
  - Sepsis [Recovered/Resolved]
  - Anaemia [Recovered/Resolved]
  - Tumour pain [Unknown]
  - Urinary tract infection [Unknown]
  - General physical health deterioration [Fatal]
  - Dehydration [Recovered/Resolved with Sequelae]

NARRATIVE: CASE EVENT DATE: 20110802
